FAERS Safety Report 7953625-0 (Version None)
Quarter: 2011Q4

REPORT INFORMATION
  Report Type: 
  Country: None (occurrence: None)
  Receive Date: 20111202
  Receipt Date: 20111124
  Transmission Date: 20120403
  Serious: Yes (Hospitalization)
  Sender: FDA-Public Use
  Company Number: EC-ELI_LILLY_AND_COMPANY-EC201111008089

PATIENT
  Age: 78 Year
  Sex: Female

DRUGS (1)
  1. INSULIN, HUMAN [Suspect]
     Indication: TYPE 2 DIABETES MELLITUS
     Dosage: 8 IU, EACH MORNING
     Dates: start: 20110922

REACTIONS (1)
  - NEOPLASM MALIGNANT [None]
